FAERS Safety Report 11648285 (Version 5)
Quarter: 2016Q1

REPORT INFORMATION
  Report Type: Spontaneous
  Country: US (occurrence: US)
  Receive Date: 20151021
  Receipt Date: 20160113
  Transmission Date: 20160525
  Serious: No
  Sender: FDA-Public Use
  Company Number: US-PFIZER INC-2015350056

PATIENT
  Age: 54 Year
  Sex: Female

DRUGS (1)
  1. LYRICA [Suspect]
     Active Substance: PREGABALIN
     Indication: NEURALGIA
     Dosage: 150 MG, 3X/DAY
     Dates: start: 20150521

REACTIONS (4)
  - Gastroenteritis viral [Recovered/Resolved]
  - Prescribed overdose [Unknown]
  - Hypokinesia [Unknown]
  - Bedridden [Unknown]

NARRATIVE: CASE EVENT DATE: 20151011
